FAERS Safety Report 4932026-3 (Version None)
Quarter: 2006Q1

REPORT INFORMATION
  Report Type: 
  Country: None (occurrence: None)
  Receive Date: 20060303
  Receipt Date: 20050930
  Transmission Date: 20060701
  Serious: Yes (Hospitalization, Other)
  Sender: FDA-Public Use
  Company Number: US-MERCK-0510USA01148

PATIENT
  Age: 69 Year
  Sex: Female
  Weight: 66 kg

DRUGS (14)
  1. VIOXX [Suspect]
     Indication: ARTHRITIS
     Route: 048
     Dates: start: 19980101, end: 20040901
  2. VIOXX [Suspect]
     Indication: POST POLIO SYNDROME
     Route: 048
     Dates: start: 19980101, end: 20040901
  3. TYLENOL (CAPLET) [Concomitant]
     Route: 065
  4. COMBIVENT [Concomitant]
     Route: 065
  5. ELOCON [Concomitant]
     Route: 048
  6. TOPROL-XL [Concomitant]
     Route: 048
  7. FLONASE [Concomitant]
     Route: 065
  8. ADALAT [Concomitant]
     Route: 048
  9. AVAPRO [Concomitant]
     Route: 048
  10. MONOPRIL [Concomitant]
     Route: 048
  11. SYNTHROID [Concomitant]
     Route: 048
  12. OS-CAL [Concomitant]
     Route: 048
  13. PREMARIN [Concomitant]
     Route: 048
  14. LIBRIUM [Concomitant]
     Route: 048

REACTIONS (15)
  - ANXIETY [None]
  - ANXIETY DISORDER [None]
  - CARDIAC DISORDER [None]
  - CARDIOVASCULAR DISORDER [None]
  - CARPAL TUNNEL SYNDROME [None]
  - CELLULITIS [None]
  - CEREBROVASCULAR ACCIDENT [None]
  - DELIRIUM [None]
  - DEMENTIA [None]
  - DEPRESSION [None]
  - INTERVERTEBRAL DISC PROTRUSION [None]
  - MYOCARDIAL INFARCTION [None]
  - OVERDOSE [None]
  - PULMONARY EMBOLISM [None]
  - SICK SINUS SYNDROME [None]
